FAERS Safety Report 11489362 (Version 1)
Quarter: 2015Q3

REPORT INFORMATION
  Report Type: Spontaneous
  Country: US (occurrence: US)
  Receive Date: 20150910
  Receipt Date: 20150910
  Transmission Date: 20151125
  Serious: Yes (Other)
  Sender: FDA-Public Use
  Company Number: US-ROCHE-1549090

PATIENT
  Age: 34 Year
  Sex: Male
  Weight: 73.5 kg

DRUGS (4)
  1. PEG-INTERFERON ALFA 2A [Suspect]
     Active Substance: PEGINTERFERON ALFA-2A
     Indication: HEPATITIS C
     Route: 058
     Dates: start: 20141010
  2. RIBAVIRIN. [Suspect]
     Active Substance: RIBAVIRIN
     Indication: HEPATITIS C
     Route: 048
     Dates: start: 20141011
  3. SOVALDI [Suspect]
     Active Substance: SOFOSBUVIR
     Indication: HEPATITIS C
     Route: 048
     Dates: start: 20141011
  4. ZOPLICONE [Suspect]
     Active Substance: ZOPICLONE
     Indication: INSOMNIA
     Route: 065

REACTIONS (15)
  - Decreased appetite [Unknown]
  - Depression [Recovering/Resolving]
  - Myalgia [Unknown]
  - Arthralgia [Unknown]
  - Influenza like illness [Unknown]
  - Bedridden [Unknown]
  - Irritability [Recovering/Resolving]
  - Pruritus [Unknown]
  - Anxiety [Recovering/Resolving]
  - Insomnia [Recovered/Resolved]
  - Dry mouth [Unknown]
  - Affect lability [Recovering/Resolving]
  - Fatigue [Unknown]
  - Malaise [Unknown]
  - Weight decreased [Unknown]

NARRATIVE: CASE EVENT DATE: 20141125
